FAERS Safety Report 5169447-2 (Version None)
Quarter: 2006Q4

REPORT INFORMATION
  Report Type: 
  Country: None (occurrence: None)
  Receive Date: 20061201
  Receipt Date: 20060912
  Transmission Date: 20070319
  Serious: Yes (Other)
  Sender: FDA-Public Use
  Company Number: 2006121031

PATIENT
  Age: 67 Year
  Sex: Female

DRUGS (6)
  1. BEXTRA [Suspect]
     Indication: GOUT
     Dosage: 10 MG (10 MG,1 IN 1 D)
     Dates: start: 20020701
  2. SYNTHROID [Concomitant]
  3. PERSANTINE [Concomitant]
  4. LOTENSIN [Concomitant]
  5. ASPIRIN [Concomitant]
  6. ESTRATEST (ESTROENS ESTERIFIED, METHYLTESTOSTERONE) [Concomitant]

REACTIONS (16)
  - ACTINIC KERATOSIS [None]
  - BLOOD GLUCOSE INCREASED [None]
  - DERMATITIS ATOPIC [None]
  - DRUG HYPERSENSITIVITY [None]
  - DRUG INEFFECTIVE [None]
  - ECZEMA ASTEATOTIC [None]
  - GASTRITIS [None]
  - HAEMOGLOBIN INCREASED [None]
  - HEADACHE [None]
  - HEPATIC STEATOSIS [None]
  - HYPERTENSION [None]
  - MIGRAINE WITH AURA [None]
  - OEDEMA PERIPHERAL [None]
  - STEVENS-JOHNSON SYNDROME [None]
  - SUPRAVENTRICULAR EXTRASYSTOLES [None]
  - VENOUS INSUFFICIENCY [None]
